FAERS Safety Report 10066622 (Version 1)
Quarter: 2014Q2

REPORT INFORMATION
  Report Type: Spontaneous
  Country: US (occurrence: US)
  Receive Date: 20140408
  Receipt Date: 20140408
  Transmission Date: 20141212
  Serious: Yes (Other)
  Sender: FDA-Public Use
  Company Number: PHEH2014US006609

PATIENT
  Sex: Female

DRUGS (9)
  1. EXFORGE [Suspect]
     Indication: HYPERTENSION
     Dosage: 1 DF, QD (320 MG VALS AND 10 MG AMLO)
     Route: 048
  2. LIVALO [Suspect]
     Dosage: 2 MG, UNK
  3. LEVEMIR [Concomitant]
     Indication: DIABETES MELLITUS
     Dosage: UNK UKN, UNK
  4. NOVOLOG [Concomitant]
     Indication: DIABETES MELLITUS
     Dosage: UNK UKN, UNK
  5. SALSALATE [Concomitant]
     Dosage: 500 MG, BID
  6. LISINOPRIL [Concomitant]
     Dosage: 10 MG, QD
  7. ESTRADIOL [Concomitant]
     Dosage: 1 MG, QD
  8. ATIVAN [Concomitant]
     Dosage: UNK UKN, PRN AT NIGHT
  9. TRAMADOL HCL [Concomitant]
     Dosage: 50 MG, PRN

REACTIONS (9)
  - Intervertebral disc degeneration [Unknown]
  - Intervertebral disc protrusion [Unknown]
  - Neuropathy peripheral [Unknown]
  - Gait disturbance [Unknown]
  - Pelvic pain [Unknown]
  - Muscle spasms [Unknown]
  - Pain in extremity [Unknown]
  - Back pain [Unknown]
  - Spinal disorder [Unknown]
